FAERS Safety Report 24614513 (Version 2)
Quarter: 2024Q4

REPORT INFORMATION
  Report Type: Spontaneous
  Country: US (occurrence: US)
  Receive Date: 20241113
  Receipt Date: 20241118
  Transmission Date: 20250114
  Serious: Yes (Other)
  Sender: PFIZER
  Company Number: US-PFIZER INC-202400299065

PATIENT
  Age: 71 Year
  Sex: Female

DRUGS (10)
  1. XELJANZ [Suspect]
     Active Substance: TOFACITINIB CITRATE
     Indication: Rheumatoid arthritis
     Dosage: 5 MG, 2X/DAY
  2. XELJANZ [Suspect]
     Active Substance: TOFACITINIB CITRATE
     Dosage: 10 MG, 1X/DAY
  3. XELJANZ [Suspect]
     Active Substance: TOFACITINIB CITRATE
     Dosage: 5 MG
  4. PREDNISONE [Suspect]
     Active Substance: PREDNISONE
     Indication: Pain
     Dosage: 60 MG
  5. PREDNISONE [Suspect]
     Active Substance: PREDNISONE
     Dosage: 50 MG
  6. PREDNISONE [Suspect]
     Active Substance: PREDNISONE
     Dosage: 40 MILLIGRAMS WITH BREAKFAST ONCE A DAY
  7. PREDNISONE [Suspect]
     Active Substance: PREDNISONE
     Dosage: TWICE A DAY LIKE 20 IN THE MORNING AND 20 IN THE EVENING OR THE 40 TOGETHER
  8. HYDROCODONE [Suspect]
     Active Substance: HYDROCODONE
     Indication: Pain
     Dosage: 1 DF, 4X/DAY (1 TABLET EVERY 6 HOURS)
  9. LOSARTAN POTASSIUM [Concomitant]
     Active Substance: LOSARTAN POTASSIUM
     Indication: Hypertension
     Dosage: 25 MG, 1X/DAY
  10. PRAVASTATIN SODIUM [Concomitant]
     Active Substance: PRAVASTATIN SODIUM
     Indication: Blood cholesterol increased
     Dosage: 40 MG, 1X/DAY

REACTIONS (5)
  - Giant cell arteritis [Unknown]
  - Drug ineffective [Unknown]
  - Arthritis [Unknown]
  - Pain [Unknown]
  - Inflammation [Unknown]

NARRATIVE: CASE EVENT DATE: 20241021
